FAERS Safety Report 6649028-1 (Version None)
Quarter: 2010Q1

REPORT INFORMATION
  Report Type: 
  Country: None (occurrence: None)
  Receive Date: 20100324
  Receipt Date: 20100315
  Transmission Date: 20100710
  Serious: Yes (Hospitalization)
  Sender: FDA-Public Use
  Company Number: JP-BRISTOL-MYERS SQUIBB COMPANY-15028277

PATIENT
  Age: 79 Year
  Sex: Male
  Weight: 48 kg

DRUGS (5)
  1. ERBITUX [Suspect]
     Indication: RECTAL CANCER
     Dosage: 300MG:03AUG09-09NOV09,100MG:25JAN-25JAN2010
     Route: 042
     Dates: start: 20090727, end: 20100125
  2. IRINOTECAN HCL [Concomitant]
     Indication: RECTAL CANCER
     Route: 042
     Dates: start: 20090727
  3. POLARAMINE [Concomitant]
     Indication: PREMEDICATION
     Route: 042
     Dates: start: 20090727, end: 20100125
  4. DECADRON [Concomitant]
     Indication: PREMEDICATION
     Route: 042
     Dates: start: 20090727, end: 20100125
  5. RAMELTEON [Concomitant]
     Indication: ANTIEMETIC SUPPORTIVE CARE
     Route: 042
     Dates: start: 20090727, end: 20100125

REACTIONS (1)
  - HERPES ZOSTER [None]
